FAERS Safety Report 7506223-7 (Version None)
Quarter: 2011Q2

REPORT INFORMATION
  Report Type: 
  Country: None (occurrence: None)
  Receive Date: 20110526
  Receipt Date: 20110513
  Transmission Date: 20111010
  Serious: Yes (Other)
  Sender: FDA-Public Use
  Company Number: CA-JNJFOC-20110312321

PATIENT
  Sex: Female
  Weight: 73.84 kg

DRUGS (2)
  1. REMICADE [Suspect]
     Route: 042
     Dates: start: 20100207
  2. REMICADE [Suspect]
     Indication: CROHN'S DISEASE
     Route: 042
     Dates: start: 20110326

REACTIONS (1)
  - RHEUMATOID ARTHRITIS [None]
